FAERS Safety Report 5849532-X (Version None)
Quarter: 2008Q3

REPORT INFORMATION
  Report Type: 
  Country: None (occurrence: None)
  Receive Date: 20080819
  Receipt Date: 20080815
  Transmission Date: 20090109
  Serious: Yes (Life-Threatening, Hospitalization)
  Sender: FDA-Public Use
  Company Number: B0532635A

PATIENT
  Age: 69 Year
  Sex: Female

DRUGS (18)
  1. PAXIL [Suspect]
     Indication: DEPRESSION
     Route: 048
  2. BLOPRESS [Concomitant]
     Dosage: 12MG PER DAY
     Route: 048
     Dates: start: 20061101
  3. FERROMIA [Concomitant]
     Dosage: 100MG PER DAY
     Route: 048
     Dates: start: 20061101
  4. ALLOZYM [Concomitant]
     Dosage: 100MG PER DAY
     Route: 048
     Dates: start: 20070701
  5. AMLODIPINE BESYLATE [Concomitant]
     Dosage: 10MG PER DAY
     Route: 048
     Dates: start: 20070101
  6. SODIUM BICARBONATE [Concomitant]
     Dosage: .5G TWICE PER DAY
     Route: 065
     Dates: start: 20061201
  7. LEVOTHYROXINE SODIUM [Concomitant]
     Dosage: 100MCG TWICE PER DAY
     Route: 048
  8. ALOSENN [Concomitant]
     Dosage: .5G PER DAY
     Route: 048
  9. ALESION [Concomitant]
     Dosage: 10MG PER DAY
     Route: 048
  10. SENNOSIDE [Concomitant]
     Dosage: 24MG PER DAY
     Route: 048
  11. CHOLEBRINE [Concomitant]
     Dosage: 1G TWICE PER DAY
     Route: 048
  12. BERAPROST SODIUM [Concomitant]
     Dosage: 20MCG TWICE PER DAY
     Route: 048
     Dates: start: 20070701
  13. ROCALTROL [Concomitant]
     Dosage: .25MCG PER DAY
     Route: 048
     Dates: start: 20070501
  14. KREMEZIN [Concomitant]
     Dosage: 2G THREE TIMES PER DAY
     Route: 048
  15. MYSLEE [Concomitant]
     Dosage: 5MG PER DAY
     Route: 048
  16. PLATIBIT [Concomitant]
     Dosage: .5MCG PER DAY
     Route: 048
  17. LIVALO [Concomitant]
     Dosage: 2MG PER DAY
     Route: 048
  18. CLARITIN [Concomitant]
     Dosage: 10MG PER DAY
     Route: 048

REACTIONS (4)
  - DEPRESSED LEVEL OF CONSCIOUSNESS [None]
  - HYPONATRAEMIA [None]
  - INAPPROPRIATE ANTIDIURETIC HORMONE SECRETION [None]
  - MALAISE [None]
